FAERS Safety Report 4447394-9 (Version None)
Quarter: 2004Q3

REPORT INFORMATION
  Report Type: 
  Country: None (occurrence: None)
  Receive Date: 20040823
  Receipt Date: 20040726
  Transmission Date: 20050211
  Serious: Yes (Other)
  Sender: FDA-Public Use
  Company Number: PHEH2004US05616

PATIENT
  Age: 61 Year
  Sex: Female

DRUGS (9)
  1. ZELNORM [Suspect]
     Indication: IRRITABLE BOWEL SYNDROME
     Dosage: SEE IMAGE
     Route: 048
     Dates: start: 20040101
  2. ZELNORM [Suspect]
     Indication: IRRITABLE BOWEL SYNDROME
     Dosage: SEE IMAGE
     Route: 048
     Dates: start: 20040121
  3. CORGARD [Concomitant]
  4. BEXTRA [Concomitant]
  5. GEMFIBROZIL [Concomitant]
  6. ALLEGRA [Concomitant]
  7. MULTIVITAMINS (RETINOL, PANTHENOL) [Concomitant]
  8. CALTRATE [Concomitant]
  9. LIBRAX /SCH/ (CHLORDIAZEPOXIDE, CLIDINIUM BROMIDE [Concomitant]

REACTIONS (3)
  - EXTRASYSTOLES [None]
  - FEELING ABNORMAL [None]
  - PRURITUS [None]
